FAERS Safety Report 4951045-4 (Version None)
Quarter: 2006Q1

REPORT INFORMATION
  Report Type: 
  Country: None (occurrence: None)
  Receive Date: 20060322
  Receipt Date: 20050916
  Transmission Date: 20060701
  Serious: Yes (Hospitalization)
  Sender: FDA-Public Use
  Company Number: US-MERCK-0509USA02728

PATIENT
  Age: 49 Year
  Sex: Female
  Weight: 105 kg

DRUGS (33)
  1. VIOXX [Suspect]
     Indication: RHEUMATOID ARTHRITIS
     Route: 048
     Dates: start: 20030616, end: 20040701
  2. VIOXX [Suspect]
     Indication: FIBROMYALGIA
     Route: 048
     Dates: start: 20030616, end: 20040701
  3. CYCLOBENZAPRINE HYDROCHLORIDE [Concomitant]
     Route: 065
  4. CODEINE [Concomitant]
     Route: 065
  5. VEETIDS [Concomitant]
     Route: 065
  6. ENDOCET [Concomitant]
     Route: 065
  7. PREDNISONE [Concomitant]
     Route: 065
  8. METOCLOPRAMIDE [Concomitant]
     Route: 065
  9. PROTONIX [Concomitant]
     Route: 065
  10. TEMAZEPAM [Concomitant]
     Route: 065
  11. CEPHALEXIN [Concomitant]
     Route: 065
  12. METHOCARBAMOL [Concomitant]
     Route: 065
  13. QUININE [Concomitant]
     Route: 065
  14. TRAZODONE HYDROCHLORIDE [Concomitant]
     Route: 065
  15. METHOTREXATE [Concomitant]
     Route: 065
  16. ESTRADIOL BENZOATE [Concomitant]
     Route: 065
  17. DITROPAN [Concomitant]
     Route: 065
  18. DIPYRIDAMOLE [Concomitant]
     Route: 065
  19. FOLIC ACID [Concomitant]
     Route: 065
  20. TOPAMAX [Concomitant]
     Route: 065
  21. FUROSEMIDE [Concomitant]
     Route: 065
  22. MORPHINE [Concomitant]
     Route: 065
  23. ACTONEL [Concomitant]
     Route: 065
  24. LORAZEPAM [Concomitant]
     Route: 065
  25. DURAGESIC-100 [Concomitant]
     Route: 065
  26. AMITRIPTYLIN [Concomitant]
     Route: 065
  27. FLUOXETINE [Concomitant]
     Route: 065
  28. TRAMADOLOR [Concomitant]
     Route: 065
  29. KETOROLAC TROMETHAMINE [Concomitant]
     Route: 065
  30. NEURONTIN [Concomitant]
     Route: 065
  31. ASPIRIN [Concomitant]
     Route: 065
  32. PREMARIN [Concomitant]
     Route: 065
  33. PRILOSEC [Concomitant]
     Route: 065

REACTIONS (7)
  - BACK DISORDER [None]
  - BURSITIS [None]
  - CEREBROVASCULAR ACCIDENT [None]
  - DEPRESSION [None]
  - HYPOTENSION [None]
  - OEDEMA PERIPHERAL [None]
  - SEDATION [None]
